FAERS Safety Report 12522605 (Version 1)
Quarter: 2016Q3

REPORT INFORMATION
  Report Type: Spontaneous
  Country: CN (occurrence: CN)
  Receive Date: 20160701
  Receipt Date: 20160701
  Transmission Date: 20161109
  Serious: Yes (Other)
  Sender: FDA-Public Use
  Company Number: CN-WATSON-2016-14518

PATIENT
  Age: 44 Year
  Sex: Male

DRUGS (3)
  1. CISPLATIN (UNKNOWN) [Suspect]
     Active Substance: CISPLATIN
     Indication: NEUROBLASTOMA
     Dosage: 45 G, DAILY, 3 CORSES OF 3 DAYS EACH
     Route: 042
  2. IFOSFAMIDE. [Suspect]
     Active Substance: IFOSFAMIDE
     Indication: NEUROBLASTOMA
     Dosage: 3 G, DAILY, 5 DAYS AND FOR 3 COURSES
     Route: 042
  3. ETOPOSIDE (UNKNOWN) [Suspect]
     Active Substance: ETOPOSIDE
     Indication: NEUROBLASTOMA
     Dosage: 0.11 G, DAILY,  5 DAYS 3 COURSES
     Route: 042

REACTIONS (5)
  - Vomiting [Unknown]
  - Alopecia [Unknown]
  - Arthralgia [Unknown]
  - Mouth ulceration [Unknown]
  - Nausea [Unknown]
